FAERS Safety Report 5637530-0 (Version None)
Quarter: 2008Q1

REPORT INFORMATION
  Report Type: 
  Country: None (occurrence: None)
  Receive Date: 20080219
  Receipt Date: 20080204
  Transmission Date: 20080703
  Serious: Yes (Hospitalization)
  Sender: FDA-Public Use
  Company Number: 2008BI002878

PATIENT
  Age: 72 Year
  Sex: Female
  Weight: 74.8435 kg

DRUGS (1)
  1. AVONEX [Suspect]
     Indication: MULTIPLE SCLEROSIS
     Dosage: 30 UG;QW;IM
     Route: 030
     Dates: start: 20041216

REACTIONS (5)
  - ASTHENIA [None]
  - CONFUSIONAL STATE [None]
  - HERPES ZOSTER [None]
  - RENAL FAILURE [None]
  - URINARY TRACT INFECTION [None]
